FAERS Safety Report 19162886 (Version 1)
Quarter: 2021Q2

REPORT INFORMATION
  Report Type: Spontaneous
  Country: US (occurrence: US)
  Receive Date: 20210420
  Receipt Date: 20210420
  Transmission Date: 20210717
  Serious: No
  Sender: FDA-Public Use
  Company Number: None

PATIENT
  Sex: Female

DRUGS (4)
  1. NORETHINDRONE/ETHINYL ESTRADIOL [GENERIC GENERESS FE 1/20} [Suspect]
     Active Substance: ETHINYL ESTRADIOL\NORETHINDRONE
     Indication: GASTROINTESTINAL CARCINOMA IN SITU
     Dosage: ?          OTHER DOSE:1 TAB;?
     Route: 048
  2. GENERESS FE [Suspect]
     Active Substance: ETHINYL ESTRADIOL\NORETHINDRONE
     Indication: GASTROINTESTINAL CARCINOMA IN SITU
     Dosage: ?          OTHER DOSE:1 TAB;?
     Route: 048
  3. GENERESS FE [Suspect]
     Active Substance: ETHINYL ESTRADIOL\NORETHINDRONE
     Indication: MENSTRUATION IRREGULAR
     Dosage: ?          OTHER DOSE:1 TAB;?
     Route: 048
  4. NORETHINDRONE/ETHINYL ESTRADIOL [GENERIC GENERESS FE 1/20} [Suspect]
     Active Substance: ETHINYL ESTRADIOL\NORETHINDRONE
     Indication: MENSTRUATION IRREGULAR
     Dosage: ?          OTHER DOSE:1 TAB;?
     Route: 048

REACTIONS (3)
  - Treatment failure [None]
  - Haemorrhage [None]
  - Nausea [None]
